FAERS Safety Report 26139792 (Version 2)
Quarter: 2025Q4

REPORT INFORMATION
  Report Type: Spontaneous
  Country: EU (occurrence: EU)
  Receive Date: 20251210
  Receipt Date: 20251214
  Transmission Date: 20260118
  Serious: Yes (Other)
  Sender: TEIKOKU
  Company Number: EU-GRUNENTHAL-2025-125253

PATIENT
  Sex: Female
  Weight: 85 kg

DRUGS (1)
  1. LIDOCAINE [Suspect]
     Active Substance: LIDOCAINE
     Indication: Neuralgia
     Dosage: 2 DOSAGE FORM, 1/DAY
     Route: 061
     Dates: end: 20250414

REACTIONS (2)
  - Metastases to bone [Unknown]
  - Drug ineffective [Unknown]
